FAERS Safety Report 10860700 (Version 2)
Quarter: 2015Q2

REPORT INFORMATION
  Report Type: Report from Study
  Country: US (occurrence: US)
  Receive Date: 20150224
  Receipt Date: 20150407
  Transmission Date: 20150821
  Serious: Yes (Death)
  Sender: FDA-Public Use
  Company Number: US-ACTELION-A-NJ2015-113127

PATIENT
  Age: 61 Year
  Sex: Male

DRUGS (5)
  1. MACITENTAN [Suspect]
     Active Substance: MACITENTAN
     Indication: PULMONARY ARTERIAL HYPERTENSION
     Dosage: 10 MG, QD
     Route: 048
     Dates: start: 20140106, end: 20150210
  2. REMODULIN [Concomitant]
     Active Substance: TREPROSTINIL
     Dosage: UNK
     Route: 042
     Dates: end: 20150210
  3. SILDENAFIL. [Concomitant]
     Active Substance: SILDENAFIL
     Indication: PULMONARY ARTERIAL HYPERTENSION
  4. TYVASO [Concomitant]
     Active Substance: TREPROSTINIL
  5. XARELTO [Concomitant]
     Active Substance: RIVAROXABAN

REACTIONS (2)
  - Pulmonary arterial hypertension [Fatal]
  - Disease progression [Fatal]

NARRATIVE: CASE EVENT DATE: 20150210
